FAERS Safety Report 22589252 (Version 1)
Quarter: 2023Q2

REPORT INFORMATION
  Report Type: Spontaneous
  Country: HK (occurrence: HK)
  Receive Date: 20230612
  Receipt Date: 20230612
  Transmission Date: 20230721
  Serious: Yes (Hospitalization)
  Sender: FDA-Public Use
  Company Number: HK-JNJFOC-20230615847

PATIENT
  Age: 72 Year
  Sex: Male

DRUGS (1)
  1. REMICADE [Suspect]
     Active Substance: INFLIXIMAB
     Indication: Pneumonitis
     Route: 041

REACTIONS (4)
  - Pneumonia acinetobacter [Recovering/Resolving]
  - Enterococcal infection [Recovering/Resolving]
  - Respiratory moniliasis [Recovering/Resolving]
  - Off label use [Unknown]
